FAERS Safety Report 13340654 (Version 1)
Quarter: 2017Q1

REPORT INFORMATION
  Report Type: Spontaneous
  Country: US (occurrence: US)
  Receive Date: 20170315
  Receipt Date: 20170315
  Transmission Date: 20170428
  Serious: No
  Sender: FDA-Public Use
  Company Number: None

PATIENT
  Age: 15 Year
  Sex: Female
  Weight: 84.6 kg

DRUGS (7)
  1. FOLIC ACID. [Concomitant]
     Active Substance: FOLIC ACID
  2. MELOXICAM. [Concomitant]
     Active Substance: MELOXICAM
  3. REMICADE [Suspect]
     Active Substance: INFLIXIMAB
  4. MULTI.VITAMIN [Concomitant]
  5. TYLENOL [Concomitant]
     Active Substance: ACETAMINOPHEN
  6. METHOTREXATE. [Concomitant]
     Active Substance: METHOTREXATE
  7. GLYCOLAX POWDER [Concomitant]

REACTIONS (4)
  - Asthenia [None]
  - Abdominal pain [None]
  - Rectal haemorrhage [None]
  - Haematochezia [None]

NARRATIVE: CASE EVENT DATE: 20161101
